FAERS Safety Report 15584094 (Version 1)
Quarter: 2018Q4

REPORT INFORMATION
  Report Type: Spontaneous
  Country: US (occurrence: US)
  Receive Date: 20181104
  Receipt Date: 20181104
  Transmission Date: 20190205
  Serious: Yes (Hospitalization)
  Sender: FDA-Public Use
  Company Number: US-009507513-1810USA012864

PATIENT
  Sex: Female

DRUGS (7)
  1. AMLODIPINE [Concomitant]
     Active Substance: AMLODIPINE BESYLATE
  2. PROVENTIL [Suspect]
     Active Substance: ALBUTEROL
     Indication: COUGH
     Route: 055
  3. ATENOLOL. [Concomitant]
     Active Substance: ATENOLOL
  4. PROVENTIL [Suspect]
     Active Substance: ALBUTEROL
     Indication: LOWER RESPIRATORY TRACT CONGESTION
  5. PROVENTIL [Suspect]
     Active Substance: ALBUTEROL
     Indication: DYSPNOEA
  6. PROVENTIL [Suspect]
     Active Substance: ALBUTEROL
     Indication: NASAL CONGESTION
  7. LOSARTAN POTASSIUM. [Concomitant]
     Active Substance: LOSARTAN POTASSIUM
     Indication: HYPERTENSION
     Dosage: 100 MILLIGRAM ONCE DAILY
     Route: 048
     Dates: start: 2013

REACTIONS (5)
  - Adverse event [Unknown]
  - Product use in unapproved indication [Unknown]
  - Wrong technique in product usage process [Unknown]
  - Drug effect incomplete [Unknown]
  - Rash [Unknown]
